FAERS Safety Report 19093620 (Version 1)
Quarter: 2021Q2

REPORT INFORMATION
  Report Type: Spontaneous
  Country: CA (occurrence: CA)
  Receive Date: 20210405
  Receipt Date: 20210405
  Transmission Date: 20210717
  Serious: Yes (Hospitalization)
  Sender: FDA-Public Use
  Company Number: CA-TEVA-2021-CA-1897244

PATIENT
  Age: 84 Year
  Sex: Male

DRUGS (15)
  1. NITRO SPRAY [Concomitant]
     Active Substance: NITROGLYCERIN
  2. SENOKOT [Concomitant]
     Active Substance: SENNOSIDES
  3. ASA [Concomitant]
     Active Substance: ASPIRIN
  4. ONDANSETRON [Concomitant]
     Active Substance: ONDANSETRON
  5. BISOPROLOL [Concomitant]
     Active Substance: BISOPROLOL
  6. LANSOPRAZOLE. [Concomitant]
     Active Substance: LANSOPRAZOLE
  7. LEVOTHYROXINE. [Concomitant]
     Active Substance: LEVOTHYROXINE
  8. TAMSULOSIN [Concomitant]
     Active Substance: TAMSULOSIN
  9. CLOPIDOGREL [Concomitant]
     Active Substance: CLOPIDOGREL BISULFATE
  10. DEXAMETHASONE. [Concomitant]
     Active Substance: DEXAMETHASONE
     Route: 065
  11. RAMIPRIL. [Concomitant]
     Active Substance: RAMIPRIL
  12. ATORVASTATIN [Concomitant]
     Active Substance: ATORVASTATIN
  13. ELIQUIS [Concomitant]
     Active Substance: APIXABAN
  14. OXALIPLATIN INJECTION SINGLE USE VIAL [Suspect]
     Active Substance: OXALIPLATIN
     Indication: GASTRIC CANCER
     Route: 042
  15. AMLODIPINE [Concomitant]
     Active Substance: AMLODIPINE BESYLATE

REACTIONS (3)
  - Pancytopenia [Recovered/Resolved]
  - Vomiting [Recovered/Resolved]
  - Diarrhoea [Recovered/Resolved]
